FAERS Safety Report 25415956 (Version 1)
Quarter: 2025Q2

REPORT INFORMATION
  Report Type: Spontaneous
  Country: HR (occurrence: HR)
  Receive Date: 20250610
  Receipt Date: 20250610
  Transmission Date: 20250716
  Serious: Yes (Hospitalization, Other)
  Sender: CHEPLAPHARM
  Company Number: None

PATIENT
  Age: 59 Year
  Sex: Male

DRUGS (32)
  1. CLONAZEPAM [Suspect]
     Active Substance: CLONAZEPAM
     Indication: Psychotic disorder
     Route: 048
     Dates: start: 2025
  2. CLONAZEPAM [Suspect]
     Active Substance: CLONAZEPAM
     Indication: Psychotic disorder
     Route: 048
     Dates: start: 2025
  3. MIDAZOLAM [Suspect]
     Active Substance: MIDAZOLAM
     Indication: Personality change
     Route: 048
     Dates: start: 2024
  4. MIDAZOLAM [Suspect]
     Active Substance: MIDAZOLAM
     Indication: Post-traumatic stress disorder
     Route: 048
     Dates: start: 2024
  5. MIDAZOLAM [Suspect]
     Active Substance: MIDAZOLAM
     Indication: Depression
     Route: 048
     Dates: start: 2024
  6. OLANZAPINE [Suspect]
     Active Substance: OLANZAPINE
     Indication: Depression
     Dosage: DAILY DOSE: 10 MILLIGRAM
     Route: 048
     Dates: start: 20250225
  7. OLANZAPINE [Suspect]
     Active Substance: OLANZAPINE
     Indication: Personality change
     Dosage: DAILY DOSE: 10 MILLIGRAM
     Route: 048
     Dates: start: 20250225
  8. OLANZAPINE [Suspect]
     Active Substance: OLANZAPINE
     Indication: Post-traumatic stress disorder
     Dosage: DAILY DOSE: 10 MILLIGRAM
     Route: 048
     Dates: start: 20250225
  9. QUETIAPINE FUMARATE [Suspect]
     Active Substance: QUETIAPINE FUMARATE
     Indication: Depression
     Dosage: DAILY DOSE: 100 MILLIGRAM
     Route: 048
     Dates: start: 20250225
  10. QUETIAPINE FUMARATE [Suspect]
     Active Substance: QUETIAPINE FUMARATE
     Indication: Personality change
     Dosage: DAILY DOSE: 100 MILLIGRAM
     Route: 048
     Dates: start: 20250225
  11. QUETIAPINE FUMARATE [Suspect]
     Active Substance: QUETIAPINE FUMARATE
     Indication: Post-traumatic stress disorder
     Dosage: DAILY DOSE: 100 MILLIGRAM
     Route: 048
     Dates: start: 20250225
  12. MIRTAZAPINE [Suspect]
     Active Substance: MIRTAZAPINE
     Indication: Personality change
     Dosage: DAILY DOSE: 30 MILLIGRAM
     Route: 048
     Dates: start: 20250225
  13. MIRTAZAPINE [Suspect]
     Active Substance: MIRTAZAPINE
     Indication: Post-traumatic stress disorder
     Dosage: DAILY DOSE: 30 MILLIGRAM
     Route: 048
     Dates: start: 20250225
  14. MIRTAZAPINE [Suspect]
     Active Substance: MIRTAZAPINE
     Indication: Depression
     Dosage: DAILY DOSE: 30 MILLIGRAM
     Route: 048
     Dates: start: 20250225
  15. ZOPICLONE [Suspect]
     Active Substance: ZOPICLONE
     Indication: Post-traumatic stress disorder
     Dosage: DAILY DOSE: 7.5 MILLIGRAM
     Route: 048
     Dates: start: 20250225
  16. ZOPICLONE [Suspect]
     Active Substance: ZOPICLONE
     Indication: Depression
     Dosage: DAILY DOSE: 7.5 MILLIGRAM
     Route: 048
     Dates: start: 20250225
  17. ZOPICLONE [Suspect]
     Active Substance: ZOPICLONE
     Indication: Personality change
     Dosage: DAILY DOSE: 7.5 MILLIGRAM
     Route: 048
     Dates: start: 20250225
  18. NORMABEL [Suspect]
     Active Substance: DIAZEPAM
     Indication: Personality change
     Route: 048
     Dates: start: 2025
  19. NORMABEL [Suspect]
     Active Substance: DIAZEPAM
     Indication: Post-traumatic stress disorder
     Route: 048
     Dates: start: 2025
  20. NORMABEL [Suspect]
     Active Substance: DIAZEPAM
     Indication: Depression
     Route: 048
     Dates: start: 2025
  21. XANAX [Suspect]
     Active Substance: ALPRAZOLAM
     Indication: Post-traumatic stress disorder
     Route: 048
     Dates: start: 2011
  22. SERTRALINE HYDROCHLORIDE [Suspect]
     Active Substance: SERTRALINE HYDROCHLORIDE
     Indication: Post-traumatic stress disorder
     Route: 048
     Dates: start: 2011
  23. ESCITALOPRAM OXALATE [Suspect]
     Active Substance: ESCITALOPRAM OXALATE
     Indication: Post-traumatic stress disorder
     Route: 048
     Dates: start: 2011
  24. MIRTAZAPINE [Suspect]
     Active Substance: MIRTAZAPINE
     Indication: Post-traumatic stress disorder
     Route: 048
     Dates: start: 2013
  25. ESCITALOPRAM OXALATE [Suspect]
     Active Substance: ESCITALOPRAM OXALATE
     Indication: Post-traumatic stress disorder
     Route: 048
     Dates: start: 2023
  26. FLURAZEPAM HYDROCHLORIDE [Suspect]
     Active Substance: FLURAZEPAM HYDROCHLORIDE
     Indication: Post-traumatic stress disorder
     Route: 048
     Dates: start: 2024
  27. FLURAZEPAM HYDROCHLORIDE [Suspect]
     Active Substance: FLURAZEPAM HYDROCHLORIDE
     Indication: Depression
     Route: 048
     Dates: start: 2024
  28. FEVARIN [Suspect]
     Active Substance: FLUVOXAMINE MALEATE
     Indication: Post-traumatic stress disorder
     Route: 048
     Dates: start: 2024
  29. FEVARIN [Suspect]
     Active Substance: FLUVOXAMINE MALEATE
     Indication: Depression
     Route: 048
     Dates: start: 2024
  30. OLANZAPINE [Suspect]
     Active Substance: OLANZAPINE
     Indication: Personality change
     Route: 048
     Dates: start: 2025
  31. OLANZAPINE [Suspect]
     Active Substance: OLANZAPINE
     Indication: Depression
     Route: 048
     Dates: start: 2025
  32. OLANZAPINE [Suspect]
     Active Substance: OLANZAPINE
     Indication: Post-traumatic stress disorder
     Route: 048
     Dates: start: 2025

REACTIONS (23)
  - Depression [Not Recovered/Not Resolved]
  - Faeces hard [Not Recovered/Not Resolved]
  - Weight increased [Not Recovered/Not Resolved]
  - Chest pain [Not Recovered/Not Resolved]
  - Slow speech [Not Recovered/Not Resolved]
  - Euphoric mood [Not Recovered/Not Resolved]
  - Nausea [Not Recovered/Not Resolved]
  - Vertigo [Not Recovered/Not Resolved]
  - Tinnitus [Not Recovered/Not Resolved]
  - Enuresis [Not Recovered/Not Resolved]
  - Dry mouth [Not Recovered/Not Resolved]
  - Somnambulism [Not Recovered/Not Resolved]
  - Stupor [Not Recovered/Not Resolved]
  - Claustrophobia [Not Recovered/Not Resolved]
  - Abdominal pain upper [Not Recovered/Not Resolved]
  - Asthma [Not Recovered/Not Resolved]
  - Angina pectoris [Not Recovered/Not Resolved]
  - Sleep apnoea syndrome [Not Recovered/Not Resolved]
  - Memory impairment [Not Recovered/Not Resolved]
  - Libido decreased [Not Recovered/Not Resolved]
  - Hypomania [Not Recovered/Not Resolved]
  - Stiff tongue [Not Recovered/Not Resolved]
  - Speech disorder [Not Recovered/Not Resolved]

NARRATIVE: CASE EVENT DATE: 20250329
